FAERS Safety Report 17362931 (Version 2)
Quarter: 2020Q1

REPORT INFORMATION
  Report Type: Spontaneous
  Country: US (occurrence: US)
  Receive Date: 20200203
  Receipt Date: 20200209
  Transmission Date: 20200409
  Serious: Yes (Death, Other)
  Sender: FDA-Public Use
  Company Number: US-SA-2020SA027828

PATIENT
  Sex: Female

DRUGS (1)
  1. ZANTAC [Suspect]
     Active Substance: RANITIDINE HYDROCHLORIDE
     Dosage: FOUR TIMES PER WEEK, FOR MORE THAN 3 YEARS

REACTIONS (3)
  - Pain [Unknown]
  - Anxiety [Unknown]
  - Brain neoplasm [Fatal]

NARRATIVE: CASE EVENT DATE: 201712
